FAERS Safety Report 15008844 (Version 7)
Quarter: 2021Q1

REPORT INFORMATION
  Report Type: Report from Study
  Country: JP (occurrence: JP)
  Receive Date: 20180613
  Receipt Date: 20210322
  Transmission Date: 20210419
  Serious: Yes (Life-Threatening, Hospitalization, Other)
  Sender: FDA-Public Use
  Company Number: JP-BIOGEN-2018BI00594083

PATIENT
  Age: 3 Month
  Sex: Male
  Weight: 4.14 kg

DRUGS (31)
  1. SPINRAZA [Suspect]
     Active Substance: NUSINERSEN
     Route: 050
     Dates: start: 20180911, end: 20180911
  2. ATARAX?P [Concomitant]
     Active Substance: HYDROXYZINE HYDROCHLORIDE
     Dates: start: 20190514, end: 20190514
  3. ATARAX?P [Concomitant]
     Active Substance: HYDROXYZINE HYDROCHLORIDE
     Dates: start: 20190910
  4. SOSEGON [Concomitant]
     Active Substance: PENTAZOCINE
     Dates: start: 20190910
  5. ATARAX?P [Concomitant]
     Active Substance: HYDROXYZINE HYDROCHLORIDE
     Dates: start: 20190122, end: 20190122
  6. SPINRAZA [Suspect]
     Active Substance: NUSINERSEN
     Indication: SPINAL MUSCULAR ATROPHY
     Route: 050
     Dates: start: 20180320, end: 20180320
  7. SPINRAZA [Suspect]
     Active Substance: NUSINERSEN
     Route: 050
     Dates: start: 20190910, end: 20190910
  8. EMLA [Concomitant]
     Active Substance: LIDOCAINE\PRILOCAINE
     Dosage: SMALL QUANTITY
     Route: 050
     Dates: start: 20180522, end: 20180522
  9. ATARAX?P [Concomitant]
     Active Substance: HYDROXYZINE HYDROCHLORIDE
     Indication: ANAESTHESIA PROCEDURE
     Dates: start: 20180522, end: 20180522
  10. MIDAZOLAM. [Concomitant]
     Active Substance: MIDAZOLAM
     Indication: ANAESTHESIA PROCEDURE
     Dates: start: 20180911, end: 20180911
  11. MIDAZOLAM. [Concomitant]
     Active Substance: MIDAZOLAM
     Dates: start: 20190910
  12. SPINRAZA [Suspect]
     Active Substance: NUSINERSEN
     Route: 050
     Dates: start: 20180522, end: 20180522
  13. SPINRAZA [Suspect]
     Active Substance: NUSINERSEN
     Route: 050
     Dates: start: 20190514, end: 20190514
  14. MIDAZOLAM. [Concomitant]
     Active Substance: MIDAZOLAM
     Dates: start: 20190514, end: 20190514
  15. EMLA [Concomitant]
     Active Substance: LIDOCAINE\PRILOCAINE
     Dosage: SMALL QUANTITY
     Route: 050
     Dates: start: 20180417, end: 20180417
  16. EMLA [Concomitant]
     Active Substance: LIDOCAINE\PRILOCAINE
     Dosage: SMALL QUANTITY
     Route: 050
     Dates: start: 20190514, end: 20190514
  17. SOSEGON [Concomitant]
     Active Substance: PENTAZOCINE
     Indication: ANAESTHESIA PROCEDURE
     Dates: start: 20180522, end: 20180522
  18. ATARAX?P [Concomitant]
     Active Substance: HYDROXYZINE HYDROCHLORIDE
     Dates: start: 20180911, end: 20180911
  19. SPINRAZA [Suspect]
     Active Substance: NUSINERSEN
     Route: 050
     Dates: start: 20180403, end: 20180403
  20. EMLA [Concomitant]
     Active Substance: LIDOCAINE\PRILOCAINE
     Indication: ANAESTHESIA PROCEDURE
     Dosage: SMALL QUANTITY
     Route: 050
     Dates: start: 20180320, end: 20180320
  21. EMLA [Concomitant]
     Active Substance: LIDOCAINE\PRILOCAINE
     Dosage: SMALL QUANTITY
     Route: 050
     Dates: start: 20190122, end: 20190122
  22. SOSEGON [Concomitant]
     Active Substance: PENTAZOCINE
     Dates: start: 20190122, end: 20190122
  23. SOSEGON [Concomitant]
     Active Substance: PENTAZOCINE
     Dates: start: 20190514, end: 20190514
  24. MIDAZOLAM. [Concomitant]
     Active Substance: MIDAZOLAM
     Dates: start: 20190122, end: 20190122
  25. SPINRAZA [Suspect]
     Active Substance: NUSINERSEN
     Route: 050
     Dates: start: 20190122, end: 20190122
  26. EMLA [Concomitant]
     Active Substance: LIDOCAINE\PRILOCAINE
     Dosage: SMALL QUANTITY
     Route: 050
     Dates: start: 20180403, end: 20180403
  27. EMLA [Concomitant]
     Active Substance: LIDOCAINE\PRILOCAINE
     Dosage: SMALL QUANTITY
     Route: 050
     Dates: start: 20180911, end: 20180911
  28. EMLA [Concomitant]
     Active Substance: LIDOCAINE\PRILOCAINE
     Dosage: TOTAL DAILY DOSE WAS REPORTED AS UNKNOWN.
     Route: 050
     Dates: start: 20190910
  29. SPINRAZA [Suspect]
     Active Substance: NUSINERSEN
     Route: 050
     Dates: start: 20180417, end: 20180417
  30. SPINRAZA [Suspect]
     Active Substance: NUSINERSEN
     Route: 050
     Dates: start: 20200121
  31. SOSEGON [Concomitant]
     Active Substance: PENTAZOCINE
     Dates: start: 20180911, end: 20180911

REACTIONS (3)
  - Laryngomalacia [Recovered/Resolved with Sequelae]
  - Pneumonia aspiration [Unknown]
  - Throat tightness [Unknown]

NARRATIVE: CASE EVENT DATE: 20180408
